FAERS Safety Report 14428354 (Version 1)
Quarter: 2018Q1

REPORT INFORMATION
  Report Type: Report from Study
  Country: US (occurrence: US)
  Receive Date: 20180123
  Receipt Date: 20180123
  Transmission Date: 20180509
  Serious: No
  Sender: FDA-Public Use
  Company Number: US-AMGEN-USASL2017154399

PATIENT
  Age: 72 Year
  Sex: Male
  Weight: 136.51 kg

DRUGS (1)
  1. REPATHA [Suspect]
     Active Substance: EVOLOCUMAB
     Indication: HYPERCHOLESTEROLAEMIA
     Dosage: 140 MG, Q2WK
     Route: 065

REACTIONS (8)
  - Rash [Recovered/Resolved]
  - Paraesthesia [Recovered/Resolved]
  - Localised infection [Recovered/Resolved]
  - Tremor [Recovered/Resolved]
  - Peripheral swelling [Unknown]
  - Adverse event [Unknown]
  - Erythema [Unknown]
  - Chills [Recovered/Resolved]
